FAERS Safety Report 15226870 (Version 2)
Quarter: 2018Q4

REPORT INFORMATION
  Report Type: Spontaneous
  Country: GB (occurrence: GB)
  Receive Date: 20180801
  Receipt Date: 20181017
  Transmission Date: 20190204
  Serious: Yes (Other)
  Sender: FDA-Public Use
  Company Number: PHHY2018GB005778

PATIENT
  Sex: Female
  Weight: 55 kg

DRUGS (1)
  1. ITRACONAZOLE. [Suspect]
     Active Substance: ITRACONAZOLE
     Indication: BRONCHOPULMONARY ASPERGILLOSIS
     Dosage: 200 MG, BID
     Route: 048

REACTIONS (4)
  - Tremor [Unknown]
  - Oedema peripheral [Unknown]
  - Cardiotoxicity [Unknown]
  - Hepatotoxicity [Unknown]
